FAERS Safety Report 7247230-1 (Version None)
Quarter: 2011Q1

REPORT INFORMATION
  Report Type: 
  Country: None (occurrence: None)
  Receive Date: 20110127
  Receipt Date: 20110119
  Transmission Date: 20110831
  Serious: Yes (Death)
  Sender: FDA-Public Use
  Company Number: JP-BAXTER-2011BH001725

PATIENT
  Sex: Male

DRUGS (2)
  1. DIANEAL 137 W/ DEXTROSE 2.5% IN PLASTIC CONTAINER [Suspect]
     Indication: RENAL FAILURE CHRONIC
     Route: 033
     Dates: end: 20110117
  2. EXTRANEAL [Suspect]
     Indication: RENAL FAILURE CHRONIC
     Route: 033
     Dates: end: 20110117

REACTIONS (2)
  - MULTI-ORGAN FAILURE [None]
  - METASTASIS [None]
